FAERS Safety Report 14572305 (Version 1)
Quarter: 2018Q1

REPORT INFORMATION
  Report Type: Report from Study
  Country: US (occurrence: US)
  Receive Date: 20180226
  Receipt Date: 20180226
  Transmission Date: 20180509
  Serious: Yes (Hospitalization)
  Sender: FDA-Public Use
  Company Number: US-HORIZON-PEN-0097-2018

PATIENT
  Age: 57 Year
  Sex: Female

DRUGS (1)
  1. PENNSAID [Suspect]
     Active Substance: DICLOFENAC SODIUM
     Indication: ARTHRALGIA
     Dosage: 2 PUMPS BID, PRN
     Dates: start: 20180111

REACTIONS (8)
  - Chest pain [Recovered/Resolved]
  - Pleural effusion [Recovered/Resolved]
  - Influenza [Unknown]
  - Off label use [Unknown]
  - Contraindicated product administered [Unknown]
  - Bacterial food poisoning [Unknown]
  - Dyspnoea [Recovered/Resolved]
  - Dysphonia [Recovered/Resolved]

NARRATIVE: CASE EVENT DATE: 20180111
